FAERS Safety Report 14006185 (Version 2)
Quarter: 2017Q4

REPORT INFORMATION
  Report Type: Spontaneous
  Country: GB (occurrence: GB)
  Receive Date: 20170924
  Receipt Date: 20171019
  Transmission Date: 20180321
  Serious: Yes (Hospitalization, Other)
  Sender: FDA-Public Use
  Company Number: GB-MYLANLABS-2017M1058086

PATIENT

DRUGS (1)
  1. ALENDRONATE [Suspect]
     Active Substance: ALENDRONATE SODIUM
     Indication: OSTEOPOROSIS
     Dosage: ONE TABLET A WEEK EVERY MONDAY AT 6AM FOR 11 YEARS
     Route: 048
     Dates: end: 20150415

REACTIONS (3)
  - Fall [Unknown]
  - Femur fracture [Unknown]
  - Bone erosion [Unknown]

NARRATIVE: CASE EVENT DATE: 20150415
